FAERS Safety Report 26000398 (Version 1)
Quarter: 2025Q4

REPORT INFORMATION
  Report Type: Spontaneous
  Country: PR (occurrence: PR)
  Receive Date: 20251105
  Receipt Date: 20251105
  Transmission Date: 20260117
  Serious: No
  Sender: ANI
  Company Number: PR-ANIPHARMA-2025-PR-000055

PATIENT
  Age: 31 Year
  Sex: Female
  Weight: 72.58 kg

DRUGS (2)
  1. CORTICOTROPIN [Suspect]
     Active Substance: CORTICOTROPIN
     Indication: Nephrotic syndrome
     Dosage: 80 U TWICE A WEEK
     Route: 058
     Dates: start: 20240925, end: 20250227
  2. PREDNISOLONE [Concomitant]
     Active Substance: PREDNISOLONE
     Route: 048

REACTIONS (1)
  - Headache [Unknown]
